FAERS Safety Report 8118948-3 (Version None)
Quarter: 2012Q1

REPORT INFORMATION
  Report Type: 
  Country: None (occurrence: None)
  Receive Date: 20120207
  Receipt Date: 20120203
  Transmission Date: 20120608
  Serious: Yes (Hospitalization, Other)
  Sender: FDA-Public Use
  Company Number: JP-PFIZER INC-2011190074

PATIENT
  Age: 69 Year
  Sex: Female
  Weight: 39.1 kg

DRUGS (8)
  1. LYRICA [Suspect]
     Indication: POST HERPETIC NEURALGIA
     Dosage: 75 MG, 1X/DAY
     Route: 048
     Dates: start: 20100802, end: 20110703
  2. DEPAS [Concomitant]
     Dosage: 0.5 MG, 1X/DAY
     Dates: start: 20100626
  3. MEXITIL [Concomitant]
     Dosage: 100 MG, 3X/DAY
     Dates: start: 20100626, end: 20101028
  4. LYRICA [Suspect]
     Dosage: 75 MG, 2X/DAY
     Route: 048
     Dates: start: 20110801, end: 20110811
  5. LOXOPROFEN SODIUM [Concomitant]
     Dosage: 60 MG, 3X/DAY
     Route: 048
     Dates: start: 20100626, end: 20110703
  6. TEGRETOL [Concomitant]
     Dosage: 100 MG, 2X/DAY
     Dates: start: 20100626
  7. DESYREL [Concomitant]
     Dosage: 50 MG, 1X/DAY
     Dates: start: 20100626, end: 20101028
  8. OMEPRAZOLE [Concomitant]
     Dosage: 20 MG, 1X/DAY
     Dates: start: 20100626

REACTIONS (7)
  - OEDEMA [None]
  - MALABSORPTION [None]
  - PROTHROMBIN TIME PROLONGED [None]
  - PLEURAL EFFUSION [None]
  - HYPOALBUMINAEMIA [None]
  - DISSEMINATED INTRAVASCULAR COAGULATION [None]
  - NEURALGIA [None]
